FAERS Safety Report 16728680 (Version 1)
Quarter: 2019Q3

REPORT INFORMATION
  Report Type: Report from Study
  Country: US (occurrence: US)
  Receive Date: 20190822
  Receipt Date: 20190822
  Transmission Date: 20191005
  Serious: Yes (Hospitalization)
  Sender: FDA-Public Use
  Company Number: US-BIOGEN-2019BI00776220

PATIENT
  Sex: Female

DRUGS (1)
  1. TECFIDERA [Suspect]
     Active Substance: DIMETHYL FUMARATE
     Indication: MULTIPLE SCLEROSIS
     Route: 048
     Dates: start: 20190319, end: 201908

REACTIONS (5)
  - Fatigue [Unknown]
  - Blood iron decreased [Unknown]
  - Drug ineffective [Unknown]
  - Gait inability [Unknown]
  - Hypotension [Unknown]
